FAERS Safety Report 11722350 (Version 1)
Quarter: 2015Q4

REPORT INFORMATION
  Report Type: Spontaneous
  Country: US (occurrence: US)
  Receive Date: 20151111
  Receipt Date: 20151111
  Transmission Date: 20160304
  Serious: Yes (Other)
  Sender: FDA-Public Use
  Company Number: US-CIPLA LTD.-2015US08496

PATIENT

DRUGS (3)
  1. CARBOPLATIN. [Suspect]
     Active Substance: CARBOPLATIN
     Indication: COLORECTAL ADENOCARCINOMA
     Dosage: AUC 6 ON DAY 1, EVERY 4 WEEKS FOR 2 CYCLES
     Route: 042
  2. PACLITAXEL. [Suspect]
     Active Substance: PACLITAXEL
     Indication: COLORECTAL ADENOCARCINOMA
     Dosage: 80 MG/M2 WEEKLY FOR 3 WEEKS (DAYS 1, 8, 15) FOR 2 CYCLES
     Route: 042
  3. CAPEGARD [Suspect]
     Active Substance: CAPECITABINE
     Indication: COLORECTAL ADENOCARCINOMA
     Dosage: 1000 MG/M2, BID ON DAYS 8-21 FOLLOWED BY 1 WEEK OF REST, EVERY 4 WEEKS FOR 2 CYCLES
     Route: 048

REACTIONS (1)
  - Disease progression [Unknown]
